FAERS Safety Report 12824805 (Version 1)
Quarter: 2016Q4

REPORT INFORMATION
  Report Type: Spontaneous
  Country: US (occurrence: US)
  Receive Date: 20161007
  Receipt Date: 20161007
  Transmission Date: 20170207
  Serious: Yes (Hospitalization, Other)
  Sender: FDA-Public Use
  Company Number: US-ASTRAZENECA-2016SF04111

PATIENT
  Age: 23640 Day
  Sex: Male
  Weight: 80.3 kg

DRUGS (3)
  1. BRILINTA [Suspect]
     Active Substance: TICAGRELOR
     Indication: CORONARY ARTERIAL STENT INSERTION
     Route: 048
     Dates: start: 20130131, end: 20130816
  2. CANAKINUMAB [Suspect]
     Active Substance: CANAKINUMAB
     Indication: CARDIOVASCULAR DISORDER
     Route: 058
     Dates: start: 20120106
  3. PLACEBO [Suspect]
     Active Substance: UNSPECIFIED INGREDIENT
     Indication: CARDIOVASCULAR DISORDER
     Route: 058
     Dates: start: 20120106

REACTIONS (5)
  - Gastrointestinal haemorrhage [Recovered/Resolved]
  - Haemorrhage [Unknown]
  - Dieulafoy^s vascular malformation [Unknown]
  - Angina pectoris [Unknown]
  - Polyp [Unknown]

NARRATIVE: CASE EVENT DATE: 20130323
